FAERS Safety Report 24276369 (Version 9)
Quarter: 2025Q3

REPORT INFORMATION
  Report Type: Report from Study
  Country: CO (occurrence: CO)
  Receive Date: 20240903
  Receipt Date: 20250805
  Transmission Date: 20251020
  Serious: Yes (Death, Life-Threatening, Hospitalization, Other)
  Sender: AMGEN
  Company Number: CO-AMGEN-COLSL2024171619

PATIENT
  Age: 59 Year
  Sex: Female

DRUGS (1)
  1. VECTIBIX [Suspect]
     Active Substance: PANITUMUMAB
     Indication: Colorectal cancer metastatic
     Dosage: 400 MILLIGRAM, Q2WK
     Route: 042
     Dates: start: 20240808, end: 20250414

REACTIONS (12)
  - Renal failure [Fatal]
  - Colorectal cancer metastatic [Fatal]
  - Chronic kidney disease [Not Recovered/Not Resolved]
  - Swelling face [Not Recovered/Not Resolved]
  - Skin haemorrhage [Not Recovered/Not Resolved]
  - Anaemia [Not Recovered/Not Resolved]
  - Rash pustular [Not Recovered/Not Resolved]
  - Infection [Not Recovered/Not Resolved]
  - Oedema peripheral [Unknown]
  - Rash [Not Recovered/Not Resolved]
  - Dry skin [Not Recovered/Not Resolved]
  - Product dose omission issue [Unknown]

NARRATIVE: CASE EVENT DATE: 20240101
